FAERS Safety Report 8835664 (Version 3)
Quarter: 2013Q1

REPORT INFORMATION
  Report Type: Spontaneous
  Country: CA (occurrence: CA)
  Receive Date: 20121011
  Receipt Date: 20130204
  Transmission Date: 20140127
  Serious: Yes (Other)
  Sender: FDA-Public Use
  Company Number: CA-PFIZER INC-2012250496

PATIENT
  Sex: Female

DRUGS (1)
  1. LYRICA [Suspect]
     Dosage: 150 MG, 2X/DAY (300MG PER DAY DIVIDED IN 2 DOSES)

REACTIONS (2)
  - Muscle contractions involuntary [Unknown]
  - Drug ineffective [Unknown]
